FAERS Safety Report 15663363 (Version 2)
Quarter: 2018Q4

REPORT INFORMATION
  Report Type: Spontaneous
  Country: IT (occurrence: IT)
  Receive Date: 20181128
  Receipt Date: 20181129
  Transmission Date: 20190205
  Serious: Yes (Other)
  Sender: FDA-Public Use
  Company Number: IT-TEVA-2018-IT-977965

PATIENT
  Age: 83 Year
  Sex: Female

DRUGS (6)
  1. ZYLORIC 300 MG COMPRESSE [Concomitant]
     Active Substance: ALLOPURINOL
  2. PRISMA 50 MG CAPSULE RIGIDE [Concomitant]
  3. DIAMICRON 60 MG COMPRESSE A RILASCIO MODIFICATO [Concomitant]
  4. NOVONORM 0.5 MG TABLETS [Concomitant]
  5. QUETIAPINA TEVA 25 MG COMPRESSE RIVESTITE CON FILM [Suspect]
     Active Substance: QUETIAPINE
     Indication: DEMENTIA
     Dosage: 75 MILLIGRAM DAILY;
     Route: 048
  6. INCRESYNC 25 MG/30 MG FILM-COATED TABLETS [Concomitant]

REACTIONS (2)
  - Drug ineffective [Recovering/Resolving]
  - Condition aggravated [Recovering/Resolving]

NARRATIVE: CASE EVENT DATE: 20181010
